FAERS Safety Report 6303961-9 (Version None)
Quarter: 2009Q3

REPORT INFORMATION
  Report Type: 
  Country: None (occurrence: None)
  Receive Date: 20090810
  Receipt Date: 20090810
  Transmission Date: 20100115
  Serious: Yes (Other)
  Sender: FDA-Public Use
  Company Number: None

PATIENT
  Age: 54 Year
  Sex: Female
  Weight: 104.3273 kg

DRUGS (1)
  1. LEVAQUIN [Suspect]
     Dosage: 1 DAILY PO
     Route: 048
     Dates: start: 20090805, end: 20090809

REACTIONS (3)
  - EYE SWELLING [None]
  - PRURITUS [None]
  - URTICARIA [None]
